FAERS Safety Report 16408251 (Version 1)
Quarter: 2019Q2

REPORT INFORMATION
  Report Type: Report from Study
  Country: AR (occurrence: AR)
  Receive Date: 20190610
  Receipt Date: 20190610
  Transmission Date: 20190711
  Serious: Yes (Hospitalization, Other)
  Sender: FDA-Public Use
  Company Number: AR-ROCHE-2327323

PATIENT
  Sex: Female

DRUGS (1)
  1. XELODA [Suspect]
     Active Substance: CAPECITABINE
     Indication: PRODUCT USED FOR UNKNOWN INDICATION
     Route: 048

REACTIONS (7)
  - Skin discolouration [Unknown]
  - Eye disorder [Unknown]
  - Colitis [Unknown]
  - Spinal pain [Unknown]
  - Pain [Unknown]
  - Toxicity to various agents [Unknown]
  - Dehydration [Unknown]
